FAERS Safety Report 4655955-7 (Version None)
Quarter: 2005Q2

REPORT INFORMATION
  Report Type: 
  Country: None (occurrence: None)
  Receive Date: 20050505
  Receipt Date: 20050415
  Transmission Date: 20051028
  Serious: Yes (Other)
  Sender: FDA-Public Use
  Company Number: US_0504115760

PATIENT
  Age: 56 Year
  Sex: Female

DRUGS (4)
  1. CEFACLOR [Suspect]
     Indication: GINGIVITIS
     Dosage: 750 MG/DAY
     Dates: start: 20050218, end: 20050228
  2. BUFFERIN [Concomitant]
  3. EXCELASE [Concomitant]
  4. ACETAMINOPHEN [Concomitant]

REACTIONS (2)
  - ANAPHYLACTIC SHOCK [None]
  - ECZEMA [None]
